FAERS Safety Report 16051259 (Version 1)
Quarter: 2019Q2

REPORT INFORMATION
  Report Type: Spontaneous
  Country: US (occurrence: US)
  Receive Date: 20190307
  Receipt Date: 20190307
  Transmission Date: 20190711
  Serious: Yes (Other)
  Sender: FDA-Public Use
  Company Number: None

PATIENT
  Age: 62 Year
  Sex: Female
  Weight: 53.06 kg

DRUGS (17)
  1. KLOR-CON 20 [Concomitant]
  2. OMEPRAZOLE. [Concomitant]
     Active Substance: OMEPRAZOLE
  3. MELATONIN [Concomitant]
     Active Substance: MELATONIN
  4. CALCIUM+D [Concomitant]
     Active Substance: CALCIUM\VITAMIN D
  5. AMOXICILLIN. [Concomitant]
     Active Substance: AMOXICILLIN
  6. DEXAMETHASONE. [Concomitant]
     Active Substance: DEXAMETHASONE
  7. OXYBUTYNIN CHLORIDE. [Concomitant]
     Active Substance: OXYBUTYNIN CHLORIDE
  8. PROCHLORPERAZINE MALEATE. [Concomitant]
     Active Substance: PROCHLORPERAZINE MALEATE
  9. HYDROCODONE-APAP [Concomitant]
     Active Substance: ACETAMINOPHEN\HYDROCODONE
  10. DULOXETINE. [Concomitant]
     Active Substance: DULOXETINE
  11. DIAZEPAM. [Concomitant]
     Active Substance: DIAZEPAM
  12. ONDASETRON HCL [Concomitant]
     Active Substance: ONDANSETRON HYDROCHLORIDE
  13. HYDROXYZINE [Concomitant]
     Active Substance: HYDROXYZINE HYDROCHLORIDE
  14. CAPECITABINE. [Suspect]
     Active Substance: CAPECITABINE
     Indication: BREAST CANCER
     Route: 048
     Dates: start: 20181031
  15. MULTIVITAMIN [Concomitant]
     Active Substance: VITAMINS
  16. VITAMIN E [Concomitant]
     Active Substance: .ALPHA.-TOCOPHEROL
  17. AMLODIPINE [Concomitant]
     Active Substance: AMLODIPINE BESYLATE

REACTIONS (2)
  - Skin fissures [None]
  - Dry skin [None]
